FAERS Safety Report 19878045 (Version 1)
Quarter: 2021Q3

REPORT INFORMATION
  Report Type: Report from Study
  Country: US (occurrence: US)
  Receive Date: 20210923
  Receipt Date: 20210923
  Transmission Date: 20211014
  Serious: Yes (Hospitalization)
  Sender: FDA-Public Use
  Company Number: US-TAKEDA-US201927849

PATIENT
  Age: 31 Year
  Sex: Female
  Weight: 52 kg

DRUGS (23)
  1. FAMOTIDINE. [Concomitant]
     Active Substance: FAMOTIDINE
     Indication: GASTROOESOPHAGEAL REFLUX DISEASE
     Dosage: 20 MILLIGRAM, QD
     Route: 048
     Dates: start: 202001
  2. TEDUGLUTIDE [Suspect]
     Active Substance: TEDUGLUTIDE
     Indication: SHORT-BOWEL SYNDROME
     Dosage: 2.67 MILLIGRAM (0.05 MG KG, 7 DOSES PER WEEK)
     Route: 065
     Dates: start: 20180615, end: 201901
  3. TEDUGLUTIDE [Suspect]
     Active Substance: TEDUGLUTIDE
     Dosage: 3.2 MILLIGRAM (0.05 MG KG, 7 DOSES PER WEEK)
     Route: 065
     Dates: start: 201902, end: 201904
  4. TEDUGLUTIDE [Suspect]
     Active Substance: TEDUGLUTIDE
     Dosage: 2.69 MILLIGRAM (0.05 MG KG, 7 DOSES PER WEEK)
     Route: 065
     Dates: start: 201904, end: 201909
  5. TEDUGLUTIDE [Suspect]
     Active Substance: TEDUGLUTIDE
     Dosage: 2.69 MILLIGRAM (0.05 MG KG, 7 DOSES PER WEEK)
     Route: 065
     Dates: start: 201904, end: 201909
  6. TEDUGLUTIDE [Suspect]
     Active Substance: TEDUGLUTIDE
     Dosage: 2.69 MILLIGRAM (0.05 MG KG, 7 DOSES PER WEEK)
     Route: 065
     Dates: start: 20191121
  7. TEDUGLUTIDE [Suspect]
     Active Substance: TEDUGLUTIDE
     Dosage: 2.69 MILLIGRAM (0.05 MG KG, 7 DOSES PER WEEK)
     Route: 065
     Dates: start: 20191121
  8. TEDUGLUTIDE [Suspect]
     Active Substance: TEDUGLUTIDE
     Indication: SHORT-BOWEL SYNDROME
     Dosage: 2.67 MILLIGRAM (0.05 MG KG, 7 DOSES PER WEEK)
     Route: 065
     Dates: start: 20180615, end: 201901
  9. TEDUGLUTIDE [Suspect]
     Active Substance: TEDUGLUTIDE
     Indication: SHORT-BOWEL SYNDROME
     Dosage: 2.67 MILLIGRAM (0.05 MG KG, 7 DOSES PER WEEK)
     Route: 065
     Dates: start: 20180615, end: 201901
  10. TEDUGLUTIDE [Suspect]
     Active Substance: TEDUGLUTIDE
     Dosage: 2.69 MILLIGRAM (0.05 MG KG, 7 DOSES PER WEEK)
     Route: 065
     Dates: start: 201904, end: 201909
  11. TEDUGLUTIDE [Suspect]
     Active Substance: TEDUGLUTIDE
     Dosage: 2.69 MILLIGRAM (0.05 MG KG, 7 DOSES PER WEEK)
     Route: 065
     Dates: start: 20191121
  12. LOPERAMIDE [Concomitant]
     Active Substance: LOPERAMIDE
     Indication: DIARRHOEA
     Dosage: 12 DOSAGE FORM, PRN
     Route: 048
     Dates: start: 202004
  13. RIFAXIMIN. [Concomitant]
     Active Substance: RIFAXIMIN
     Indication: DIARRHOEA
     Dosage: 550 MILLIGRAM, TID
     Route: 048
     Dates: start: 202001, end: 202002
  14. OPIUM TINCTURE [Concomitant]
     Active Substance: MORPHINE
     Indication: DIARRHOEA
     Dosage: 0.60 MILLILITER, PRN
     Route: 048
     Dates: start: 202001
  15. TEDUGLUTIDE [Suspect]
     Active Substance: TEDUGLUTIDE
     Dosage: 3.2 MILLIGRAM (0.05 MG KG, 7 DOSES PER WEEK)
     Route: 065
     Dates: start: 201902, end: 201904
  16. TEDUGLUTIDE [Suspect]
     Active Substance: TEDUGLUTIDE
     Dosage: 3.2 MILLIGRAM (0.05 MG KG, 7 DOSES PER WEEK)
     Route: 065
     Dates: start: 201902, end: 201904
  17. TEDUGLUTIDE [Suspect]
     Active Substance: TEDUGLUTIDE
     Dosage: 2.69 MILLIGRAM (0.05 MG KG, 7 DOSES PER WEEK)
     Route: 065
     Dates: start: 20191121
  18. ONDASETRON [ONDANSETRON] [Concomitant]
     Active Substance: ONDANSETRON
     Indication: NAUSEA
  19. TEDUGLUTIDE [Suspect]
     Active Substance: TEDUGLUTIDE
     Dosage: 3.2 MILLIGRAM (0.05 MG KG, 7 DOSES PER WEEK)
     Route: 065
     Dates: start: 201902, end: 201904
  20. CLONAZEPAM. [Concomitant]
     Active Substance: CLONAZEPAM
     Indication: ANXIETY
  21. TEDUGLUTIDE [Suspect]
     Active Substance: TEDUGLUTIDE
     Indication: SHORT-BOWEL SYNDROME
     Dosage: 2.67 MILLIGRAM (0.05 MG KG, 7 DOSES PER WEEK)
     Route: 065
     Dates: start: 20180615, end: 201901
  22. TEDUGLUTIDE [Suspect]
     Active Substance: TEDUGLUTIDE
     Dosage: 2.69 MILLIGRAM (0.05 MG KG, 7 DOSES PER WEEK)
     Route: 065
     Dates: start: 201904, end: 201909
  23. TUMS [Concomitant]
     Active Substance: CALCIUM CARBONATE
     Indication: DYSPEPSIA

REACTIONS (1)
  - Abdominal adhesions [Recovered/Resolved]

NARRATIVE: CASE EVENT DATE: 20190103
